FAERS Safety Report 7820501-3 (Version None)
Quarter: 2011Q4

REPORT INFORMATION
  Report Type: 
  Country: None (occurrence: None)
  Receive Date: 20111018
  Receipt Date: 20111011
  Transmission Date: 20120403
  Serious: Yes (Life-Threatening, Hospitalization)
  Sender: FDA-Public Use
  Company Number: US-ELI_LILLY_AND_COMPANY-US201109002848

PATIENT
  Sex: Male

DRUGS (19)
  1. CARBOPLATIN [Suspect]
     Indication: NON-SMALL CELL LUNG CANCER STAGE IV
     Dosage: 6 AUC, EVERY 21 DAYS
     Route: 042
     Dates: start: 20110726
  2. GLUCOSAMINE [Concomitant]
     Indication: ARTHRALGIA
     Dosage: UNK
     Dates: start: 20091002
  3. FLOMAX [Concomitant]
     Dosage: UNK
     Dates: start: 20111002
  4. AVODART [Concomitant]
     Indication: BENIGN PROSTATIC HYPERPLASIA
     Dosage: UNK
     Dates: start: 20091002
  5. ASPIRIN [Concomitant]
     Indication: PROPHYLAXIS
     Dosage: UNK
     Dates: start: 20091002
  6. DEXAMETHASONE [Concomitant]
     Indication: PROPHYLACTIC CHEMOTHERAPY
     Dosage: UNK
     Dates: start: 20110725
  7. VITAMIN B-12 [Concomitant]
     Indication: PROPHYLAXIS
     Dosage: UNK
     Dates: start: 20110919
  8. AMBIEN [Concomitant]
     Indication: INSOMNIA
     Dosage: UNK
  9. PEMETREXED [Suspect]
     Indication: NON-SMALL CELL LUNG CANCER STAGE IV
     Dosage: 500 MG/M2, EVERY 21 DAYS
     Route: 042
     Dates: start: 20110726
  10. ONDANSETRON [Concomitant]
     Indication: PROPHYLACTIC CHEMOTHERAPY
     Dosage: UNK
     Dates: start: 20110626
  11. NORCO [Concomitant]
     Indication: PAIN
     Dosage: UNK
  12. MILK OF MAGNESIA TAB [Concomitant]
     Indication: CONSTIPATION
     Dosage: UNK
     Dates: start: 20110802
  13. PROCHLORPERAZINE [Concomitant]
     Indication: PROPHYLAXIS
     Dosage: UNK
     Dates: start: 20110726
  14. ALBUTEROL [Concomitant]
     Indication: COUGH
     Dosage: UNK
  15. BEVACIZUMAB [Suspect]
     Indication: NON-SMALL CELL LUNG CANCER STAGE IV
     Dosage: 15 MG/KG, EVERY 21 DAYS
     Route: 042
     Dates: start: 20110726, end: 20110930
  16. FLOMAX [Concomitant]
     Indication: BENIGN PROSTATIC HYPERPLASIA
     Dosage: UNK
     Dates: start: 20091002
  17. FOLIC ACID [Concomitant]
     Indication: PROPHYLAXIS
     Dosage: UNK
     Dates: start: 20110919
  18. CODEINE PHOSPHATE [Concomitant]
     Indication: COUGH
     Dosage: UNK
     Dates: start: 20110622
  19. AVODART [Concomitant]
     Dosage: UNK
     Dates: start: 20111002

REACTIONS (4)
  - DYSPNOEA [None]
  - PULMONARY EMBOLISM [None]
  - PLEURAL EFFUSION [None]
  - DEEP VEIN THROMBOSIS [None]
